FAERS Safety Report 15099303 (Version 11)
Quarter: 2019Q4

REPORT INFORMATION
  Report Type: Report from Study
  Country: US (occurrence: US)
  Receive Date: 20180702
  Receipt Date: 20191122
  Transmission Date: 20200122
  Serious: Yes (Death, Hospitalization, Other)
  Sender: FDA-Public Use
  Company Number: US-TESARO, INC-US-2018TSO03279

PATIENT
  Age: 65 Year
  Sex: Female
  Weight: 87 kg

DRUGS (4)
  1. NIRAPARIB [Suspect]
     Active Substance: NIRAPARIB
     Dosage: 100 MG, QD (AM WITH BREAKFAST)
     Route: 048
     Dates: start: 20180406, end: 20190502
  2. NIRAPARIB [Suspect]
     Active Substance: NIRAPARIB
     Indication: FALLOPIAN TUBE CANCER
     Dosage: 200 MG, QD
     Route: 065
     Dates: start: 20180316, end: 20180329
  3. NIRAPARIB [Suspect]
     Active Substance: NIRAPARIB
     Dosage: 200 MG, UNK
     Dates: start: 20180330, end: 20180405
  4. TEMAZEPAM. [Concomitant]
     Active Substance: TEMAZEPAM
     Indication: PRODUCT USED FOR UNKNOWN INDICATION
     Dosage: UNK

REACTIONS (34)
  - Speech disorder [Unknown]
  - Recurrent cancer [Unknown]
  - Feeling abnormal [Unknown]
  - Musculoskeletal stiffness [Not Recovered/Not Resolved]
  - Dyspnoea exertional [Not Recovered/Not Resolved]
  - Haemoglobin decreased [Unknown]
  - Product dose omission [Unknown]
  - Platelet count decreased [Not Recovered/Not Resolved]
  - Cystitis [Unknown]
  - Hot flush [Recovered/Resolved]
  - Loss of personal independence in daily activities [Recovering/Resolving]
  - Eastern Cooperative Oncology Group performance status worsened [Not Recovered/Not Resolved]
  - Insomnia [Not Recovered/Not Resolved]
  - Vomiting [Not Recovered/Not Resolved]
  - Bronchitis [Recovered/Resolved]
  - Dyspnoea [Unknown]
  - Confusional state [Not Recovered/Not Resolved]
  - Carbohydrate antigen 125 increased [Not Recovered/Not Resolved]
  - Decreased appetite [Recovering/Resolving]
  - Metastases to abdominal wall [Unknown]
  - Night sweats [Recovered/Resolved]
  - Joint stiffness [Not Recovered/Not Resolved]
  - Death [Fatal]
  - Neuropathy peripheral [Not Recovered/Not Resolved]
  - Hospitalisation [Unknown]
  - Metastases to pelvis [Unknown]
  - Malaise [Recovered/Resolved]
  - Fatigue [Not Recovered/Not Resolved]
  - Asthenia [Not Recovered/Not Resolved]
  - Nasopharyngitis [Recovered/Resolved]
  - Cough [Recovered/Resolved]
  - Malignant neoplasm progression [Unknown]
  - Sleep disorder [Not Recovered/Not Resolved]
  - Urinary tract infection [Recovered/Resolved]

NARRATIVE: CASE EVENT DATE: 20180316
